FAERS Safety Report 19184747 (Version 1)
Quarter: 2021Q2

REPORT INFORMATION
  Report Type: Spontaneous
  Country: GB (occurrence: GB)
  Receive Date: 20210427
  Receipt Date: 20210427
  Transmission Date: 20210717
  Serious: Yes (Other)
  Sender: FDA-Public Use
  Company Number: GB-PFIZER INC-2021416395

PATIENT
  Age: 28 Year
  Sex: Male
  Weight: 80 kg

DRUGS (1)
  1. MINOXIDIL. [Suspect]
     Active Substance: MINOXIDIL
     Indication: ALOPECIA
     Dosage: UNK, 2X/DAY
     Route: 048
     Dates: start: 20180901, end: 20200301

REACTIONS (4)
  - Off label use [Unknown]
  - Erectile dysfunction [Recovering/Resolving]
  - Loss of libido [Not Recovered/Not Resolved]
  - Blood prolactin increased [Recovering/Resolving]

NARRATIVE: CASE EVENT DATE: 20180901
